FAERS Safety Report 10502115 (Version 1)
Quarter: 2014Q4

REPORT INFORMATION
  Report Type: Not Available
  Country: SE (occurrence: SE)
  Receive Date: 20141007
  Receipt Date: 20141007
  Transmission Date: 20150528
  Serious: Yes (Other)
  Sender: FDA-Public Use
  Company Number: SE-MUNDIPHARMA DS AND PHARMACOVIGILANCE-GBR-2014-0022400

PATIENT
  Age: 84 Year
  Sex: Male

DRUGS (9)
  1. OXYNORM [Concomitant]
     Active Substance: OXYCODONE HYDROCHLORIDE
     Indication: PRODUCT USED FOR UNKNOWN INDICATION
     Route: 048
  2. AMITRIPTYLINE [Interacting]
     Active Substance: AMITRIPTYLINE
     Indication: DIABETIC NEUROPATHY
     Dosage: 4 TABLETTER TILL NATTEN
     Route: 048
  3. OXYCONTIN [Suspect]
     Active Substance: OXYCODONE HYDROCHLORIDE
     Indication: JOINT INJURY
     Dosage: 5 MG, DAILY
  4. OXYCONTIN [Interacting]
     Active Substance: OXYCODONE HYDROCHLORIDE
     Dosage: 20 MG, DAILY
     Route: 048
     Dates: start: 20140909
  5. ATENOLOL. [Concomitant]
     Active Substance: ATENOLOL
  6. WARAN [Concomitant]
     Active Substance: WARFARIN SODIUM
  7. SAROTEN [Concomitant]
     Active Substance: AMITRIPTYLINE
     Dosage: 10 MG, UNK
  8. LOSARTAN [Concomitant]
     Active Substance: LOSARTAN
  9. LATANOPROST. [Concomitant]
     Active Substance: LATANOPROST

REACTIONS (10)
  - Lethargy [Unknown]
  - International normalised ratio increased [Unknown]
  - C-reactive protein increased [Unknown]
  - Dehydration [Unknown]
  - Renal impairment [Unknown]
  - Diarrhoea [Unknown]
  - Blood creatinine increased [Unknown]
  - Fatigue [Unknown]
  - Disorientation [Unknown]
  - Confusional state [Recovered/Resolved]

NARRATIVE: CASE EVENT DATE: 2014
